FAERS Safety Report 23137593 (Version 1)
Quarter: 2023Q4

REPORT INFORMATION
  Report Type: Spontaneous
  Country: US (occurrence: US)
  Receive Date: 20231102
  Receipt Date: 20231102
  Transmission Date: 20240110
  Serious: Yes (Disabling, Other)
  Sender: FDA-Public Use
  Company Number: US-PURDUE PHARMA-USA-2023-0304544

PATIENT
  Sex: Female
  Weight: 110 kg

DRUGS (1)
  1. OXYCONTIN [Suspect]
     Active Substance: OXYCODONE HYDROCHLORIDE
     Indication: Pain
     Dosage: 80 MILLIGRAM, BID
     Route: 048
     Dates: start: 20060101, end: 20110101

REACTIONS (1)
  - Drug dependence [Not Recovered/Not Resolved]
